FAERS Safety Report 10131625 (Version 4)
Quarter: 2014Q3

REPORT INFORMATION
  Report Type: Report from Study
  Country: US (occurrence: US)
  Receive Date: 20140428
  Receipt Date: 20140828
  Transmission Date: 20150326
  Serious: Yes (Hospitalization)
  Sender: FDA-Public Use
  Company Number: US-ACTELION-A-US2014-93644

PATIENT
  Age: 61 Year
  Sex: Female

DRUGS (2)
  1. VELETRI [Suspect]
     Active Substance: EPOPROSTENOL
     Indication: PULMONARY ARTERIAL HYPERTENSION
     Dosage: 27 NG/KG, PER MIN
     Route: 042
     Dates: start: 20130109
  2. VELETRI [Suspect]
     Active Substance: EPOPROSTENOL
     Dosage: 26 NG/KG, PER MIN
     Route: 042

REACTIONS (7)
  - Device related infection [Unknown]
  - Cellulitis [Unknown]
  - Catheter site infection [Unknown]
  - Catheter site haemorrhage [Unknown]
  - Oedema peripheral [Unknown]
  - Catheter site swelling [Unknown]
  - Catheter site erythema [Unknown]
